FAERS Safety Report 6503652-5 (Version None)
Quarter: 2009Q4

REPORT INFORMATION
  Report Type: 
  Country: None (occurrence: None)
  Receive Date: 20091217
  Receipt Date: 20091209
  Transmission Date: 20100525
  Serious: Yes (Other)
  Sender: FDA-Public Use
  Company Number: B0614536B

PATIENT
  Sex: Male

DRUGS (2)
  1. ERYTHROMYCIN [Suspect]
     Indication: PREMATURE RUPTURE OF MEMBRANES
  2. BETAMETHASONE [Concomitant]
     Indication: PREMATURE RUPTURE OF MEMBRANES

REACTIONS (2)
  - FEEDING DISORDER NEONATAL [None]
  - JAUNDICE NEONATAL [None]
